FAERS Safety Report 23410068 (Version 1)
Quarter: 2024Q1

REPORT INFORMATION
  Report Type: Spontaneous
  Country: US (occurrence: None)
  Receive Date: 20240116
  Receipt Date: 20240116
  Transmission Date: 20240409
  Serious: Yes (Death)
  Sender: FDA-Public Use
  Company Number: None

PATIENT
  Age: 75 Year
  Sex: Male

DRUGS (9)
  1. LOKELMA [Suspect]
     Active Substance: SODIUM ZIRCONIUM CYCLOSILICATE
     Indication: Product used for unknown indication
     Dosage: 5GM ORAL??DIRECTIONS: MIX THE CONTENTS OF 1 PACKET IN DRINK AND DRINK FULL AMOUNT PO QD
     Route: 048
     Dates: start: 20231020
  2. HYDRALAZINE [Concomitant]
  3. METOPROLOL [Concomitant]
  4. MIRTAZAPINE [Concomitant]
     Active Substance: MIRTAZAPINE
  5. OMEPRAZOLE [Concomitant]
  6. PLAVIX [Concomitant]
     Active Substance: CLOPIDOGREL BISULFATE
  7. PRAVACHOL [Concomitant]
  8. VITAMIN B12 [Concomitant]
     Active Substance: CYANOCOBALAMIN
  9. VITAMIN D [Concomitant]
     Active Substance: VITAMIN D NOS

REACTIONS (1)
  - Death [None]

NARRATIVE: CASE EVENT DATE: 20240101
